FAERS Safety Report 7624054-4 (Version None)
Quarter: 2011Q3

REPORT INFORMATION
  Report Type: 
  Country: None (occurrence: None)
  Receive Date: 20110719
  Receipt Date: 20110719
  Transmission Date: 20111222
  Serious: No
  Sender: FDA-Public Use
  Company Number: None

PATIENT
  Age: 71 Year
  Sex: Male
  Weight: 81.9 kg

DRUGS (1)
  1. FINASTERIDE [Suspect]
     Dosage: 5 MG EVERY DAY PO
     Route: 048
     Dates: start: 20080716, end: 20110611

REACTIONS (3)
  - NIPPLE PAIN [None]
  - BREAST SWELLING [None]
  - GYNAECOMASTIA [None]
